FAERS Safety Report 4928818-7 (Version None)
Quarter: 2006Q1

REPORT INFORMATION
  Report Type: 
  Country: None (occurrence: None)
  Receive Date: 20060228
  Receipt Date: 20060228
  Transmission Date: 20060701
  Serious: Yes (Other)
  Sender: FDA-Public Use
  Company Number: None

PATIENT
  Sex: Female
  Weight: 97.977 kg

DRUGS (1)
  1. PAROXETINE  10 MG  ? [Suspect]
     Indication: DEPRESSION
     Dosage: 10 MG PO, TWICE/DAY BID, PO
     Route: 048
     Dates: start: 20060117, end: 20060122

REACTIONS (10)
  - ASTHENIA [None]
  - DISTURBANCE IN ATTENTION [None]
  - DRUG WITHDRAWAL SYNDROME [None]
  - EXERCISE TOLERANCE DECREASED [None]
  - FEELING ABNORMAL [None]
  - INCREASED APPETITE [None]
  - PHARMACEUTICAL PRODUCT COMPLAINT [None]
  - POOR QUALITY DRUG ADMINISTERED [None]
  - SEDATION [None]
  - WEIGHT INCREASED [None]
